FAERS Safety Report 10863190 (Version 1)
Quarter: 2015Q1

REPORT INFORMATION
  Report Type: Spontaneous
  Country: FR (occurrence: FR)
  Receive Date: 20150223
  Receipt Date: 20150223
  Transmission Date: 20150721
  Serious: Yes (Death)
  Sender: FDA-Public Use
  Company Number: FR-MYLANLABS-2015M1005468

PATIENT

DRUGS (2)
  1. MORPHINE [Suspect]
     Active Substance: MORPHINE
     Route: 065
  2. ALFENTANIL [Suspect]
     Active Substance: ALFENTANIL
     Route: 065

REACTIONS (3)
  - Respiratory depression [Fatal]
  - Hypotension [Fatal]
  - Toxicity to various agents [Fatal]
